FAERS Safety Report 18590373 (Version 1)
Quarter: 2020Q4

REPORT INFORMATION
  Report Type: Spontaneous
  Country: US (occurrence: US)
  Receive Date: 20201208
  Receipt Date: 20201208
  Transmission Date: 20210114
  Serious: Yes (Hospitalization, Other)
  Sender: FDA-Public Use
  Company Number: US-TARO-2020TAR01739

PATIENT
  Age: 23 Year
  Sex: Female
  Weight: 117 kg

DRUGS (6)
  1. CLOBAZAM. [Interacting]
     Active Substance: CLOBAZAM
     Dosage: 30 MG PM
     Route: 065
  2. CLOBAZAM. [Suspect]
     Active Substance: CLOBAZAM
     Indication: STATUS EPILEPTICUS
     Dosage: 25 MG AM
     Route: 065
  3. TOPIRAMATE. [Interacting]
     Active Substance: TOPIRAMATE
     Indication: STATUS EPILEPTICUS
     Dosage: 200 MG, BID
     Route: 065
  4. EPIDIOLEX [Interacting]
     Active Substance: CANNABIDIOL
     Indication: STATUS EPILEPTICUS
     Dosage: 2.9 ML, BID (100 MG/ML SOLUTION)
     Route: 065
  5. LACOSAMIDE. [Interacting]
     Active Substance: LACOSAMIDE
     Indication: STATUS EPILEPTICUS
     Dosage: 150 MG, BID
     Route: 065
  6. EPIDIOLEX [Interacting]
     Active Substance: CANNABIDIOL
     Dosage: 5.8 ML, BID (100 MG/ML SOLUTION)
     Route: 065

REACTIONS (4)
  - Rash morbilliform [Recovered/Resolved]
  - Drug interaction [Recovered/Resolved]
  - Dyspnoea [Recovered/Resolved]
  - Diarrhoea [Recovered/Resolved]
